FAERS Safety Report 6738607-9 (Version None)
Quarter: 2010Q2

REPORT INFORMATION
  Report Type: 
  Country: None (occurrence: None)
  Receive Date: 20100524
  Receipt Date: 20100513
  Transmission Date: 20101027
  Serious: Yes (Other)
  Sender: FDA-Public Use
  Company Number: AR-PFIZER INC-2010054816

PATIENT
  Age: 67 Year
  Sex: Male
  Weight: 79 kg

DRUGS (7)
  1. SUNITINIB MALATE [Suspect]
     Indication: RENAL CANCER
     Dosage: 50 MG, 1X/DAY, EVERY DAY FOR 28 DAYS
     Route: 048
     Dates: end: 20100420
  2. LERCANIDIPINE [Concomitant]
     Dosage: UNK
  3. LOSARTAN [Concomitant]
     Dosage: TDD 50 MG
  4. BISOPROLOL [Concomitant]
     Dosage: 10 MG, UNK
  5. ACETYLSALICYLIC ACID [Concomitant]
     Dosage: UNK
  6. TAMSULOSIN [Concomitant]
     Dosage: UNK
  7. ALPRAZOLAM [Concomitant]
     Dosage: TDD 2.5 MG

REACTIONS (8)
  - ANAEMIA [None]
  - BLOOD CREATINE PHOSPHOKINASE INCREASED [None]
  - BLOOD CREATININE INCREASED [None]
  - BLOOD UREA INCREASED [None]
  - CREATININE RENAL CLEARANCE DECREASED [None]
  - LEUKOPENIA [None]
  - MYALGIA [None]
  - RENAL IMPAIRMENT [None]
